FAERS Safety Report 16095276 (Version 2)
Quarter: 2019Q2

REPORT INFORMATION
  Report Type: Spontaneous
  Country: US (occurrence: US)
  Receive Date: 20190320
  Receipt Date: 20190626
  Transmission Date: 20190711
  Serious: No
  Sender: FDA-Public Use
  Company Number: US-PFIZER INC-2019118823

PATIENT
  Age: 85 Year
  Sex: Male

DRUGS (1)
  1. EUCRISA [Suspect]
     Active Substance: CRISABOROLE
     Indication: DERMATITIS
     Dosage: UNK (APPLY TO AFFECTED AREAS TWICE DAILY)
     Dates: start: 20190206

REACTIONS (3)
  - Drug ineffective [Unknown]
  - Pruritus [Unknown]
  - Rash [Unknown]
